FAERS Safety Report 15522846 (Version 2)
Quarter: 2018Q4

REPORT INFORMATION
  Report Type: Spontaneous
  Country: US (occurrence: US)
  Receive Date: 20181017
  Receipt Date: 20181221
  Transmission Date: 20190205
  Serious: Yes (Hospitalization, Other)
  Sender: FDA-Public Use
  Company Number: US-GLAXOSMITHKLINE-US2018187694

PATIENT
  Sex: Female

DRUGS (2)
  1. ADVAIR HFA [Suspect]
     Active Substance: FLUTICASONE PROPIONATE\SALMETEROL XINAFOATE
     Indication: CHRONIC OBSTRUCTIVE PULMONARY DISEASE
     Dosage: 2 PUFF(S), BID
     Route: 055
  2. ADVAIR DISKUS [Suspect]
     Active Substance: FLUTICASONE PROPIONATE\SALMETEROL XINAFOATE
     Indication: CHRONIC OBSTRUCTIVE PULMONARY DISEASE
     Dosage: 1 PUFF(S), BID
     Route: 055

REACTIONS (9)
  - Urinary tract infection [Recovered/Resolved]
  - Asthenia [Unknown]
  - Overdose [Unknown]
  - Pneumonia [Recovered/Resolved]
  - Vomiting [Unknown]
  - Candida infection [Not Recovered/Not Resolved]
  - Product use in unapproved indication [Unknown]
  - Sepsis [Recovered/Resolved]
  - Wrong technique in device usage process [Unknown]
